FAERS Safety Report 21178945 (Version 2)
Quarter: 2022Q3

REPORT INFORMATION
  Report Type: Spontaneous
  Country: US (occurrence: US)
  Receive Date: 20220805
  Receipt Date: 20220824
  Transmission Date: 20221027
  Serious: Yes (Other)
  Sender: FDA-Public Use
  Company Number: US-ABBVIE-22K-163-4493025-00

PATIENT
  Age: 65 Year
  Sex: Male

DRUGS (2)
  1. RINVOQ [Suspect]
     Active Substance: UPADACITINIB
     Indication: Dermatitis atopic
     Route: 048
     Dates: start: 20220429, end: 202205
  2. RINVOQ [Suspect]
     Active Substance: UPADACITINIB
     Route: 048
     Dates: start: 202205, end: 20220722

REACTIONS (2)
  - Cerebrovascular accident [Unknown]
  - Thrombosis [Unknown]

NARRATIVE: CASE EVENT DATE: 20220722
